FAERS Safety Report 17516503 (Version 1)
Quarter: 2020Q1

REPORT INFORMATION
  Report Type: Spontaneous
  Country: US (occurrence: US)
  Receive Date: 20200227
  Receipt Date: 20200227
  Transmission Date: 20200409
  Serious: No
  Sender: FDA-Public Use
  Company Number: None

PATIENT
  Age: 5 Year
  Sex: Female

DRUGS (1)
  1. NORDITROPIN [Suspect]
     Active Substance: SOMATROPIN
     Dosage: ?          OTHER DOSE:0.7MG 6 DAY A WEEK;OTHER FREQUENCY:OTHER;?
     Route: 058
     Dates: start: 201911

REACTIONS (1)
  - Crying [None]

NARRATIVE: CASE EVENT DATE: 20200212
